FAERS Safety Report 6392144-2 (Version None)
Quarter: 2009Q4

REPORT INFORMATION
  Report Type: 
  Country: None (occurrence: None)
  Receive Date: 20091001
  Receipt Date: 20090630
  Transmission Date: 20100525
  Serious: Yes (Other)
  Sender: FDA-Public Use
  Company Number: US-1170120

PATIENT

DRUGS (1)
  1. TRIESENCE [Suspect]
     Dosage: INTRAOCULAR
     Route: 031
     Dates: start: 20090624, end: 20090624

REACTIONS (1)
  - EYE INFECTION INTRAOCULAR [None]
